FAERS Safety Report 16716882 (Version 1)
Quarter: 2019Q3

REPORT INFORMATION
  Report Type: Spontaneous
  Country: CN (occurrence: CN)
  Receive Date: 20190819
  Receipt Date: 20190819
  Transmission Date: 20191005
  Serious: Yes (Hospitalization)
  Sender: FDA-Public Use
  Company Number: CN-NOVOPROD-678993

PATIENT
  Age: 66 Year
  Sex: Female
  Weight: 52 kg

DRUGS (2)
  1. NOVOLIN [Suspect]
     Active Substance: INSULIN HUMAN
     Dosage: 13 IU, QD (8-0-5, DOSE DECREASED)
     Route: 058
  2. NOVOLIN [Suspect]
     Active Substance: INSULIN HUMAN
     Indication: DIABETES MELLITUS
     Dosage: 11 IU, BID
     Route: 058
     Dates: start: 20190722

REACTIONS (3)
  - Hyperhidrosis [Recovering/Resolving]
  - Abnormal behaviour [Recovering/Resolving]
  - Hypoglycaemia [Recovering/Resolving]

NARRATIVE: CASE EVENT DATE: 20190730
